FAERS Safety Report 23745131 (Version 1)
Quarter: 2024Q2

REPORT INFORMATION
  Report Type: Report from Study
  Country: CA (occurrence: CA)
  Receive Date: 20240416
  Receipt Date: 20240416
  Transmission Date: 20240716
  Serious: Yes (Hospitalization)
  Sender: FDA-Public Use
  Company Number: CA-BoehringerIngelheim-2023-BI-249435

PATIENT
  Age: 65 Year
  Sex: Male

DRUGS (1)
  1. OFEV [Suspect]
     Active Substance: NINTEDANIB
     Indication: Product used for unknown indication
     Dates: start: 20230707, end: 20240308

REACTIONS (12)
  - Ulcer haemorrhage [Recovered/Resolved]
  - Cardiac arrest [Recovered/Resolved]
  - Jaundice [Not Recovered/Not Resolved]
  - Liver function test abnormal [Unknown]
  - Nephrolithiasis [Recovered/Resolved]
  - Chest pain [Not Recovered/Not Resolved]
  - Contusion [Recovering/Resolving]
  - Cough [Not Recovered/Not Resolved]
  - Dyspnoea [Not Recovered/Not Resolved]
  - Diarrhoea [Not Recovered/Not Resolved]
  - Constipation [Recovered/Resolved]
  - Abdominal pain [Not Recovered/Not Resolved]

NARRATIVE: CASE EVENT DATE: 20240201
